FAERS Safety Report 5488837-1 (Version None)
Quarter: 2007Q4

REPORT INFORMATION
  Report Type: 
  Country: None (occurrence: None)
  Receive Date: 20071016
  Receipt Date: 20070911
  Transmission Date: 20080405
  Serious: Yes (Other)
  Sender: FDA-Public Use
  Company Number: 8027463

PATIENT
  Age: 7 Year
  Sex: Male
  Weight: 20 kg

DRUGS (1)
  1. XYZALL /01530201/ [Suspect]
     Indication: SEASONAL ALLERGY
     Dosage: 5 MG /D PO
     Route: 048
     Dates: start: 20060101, end: 20060801

REACTIONS (3)
  - AGITATION [None]
  - DYSKINESIA [None]
  - INSOMNIA [None]
